FAERS Safety Report 15507027 (Version 1)
Quarter: 2018Q4

REPORT INFORMATION
  Report Type: Spontaneous
  Country: TR (occurrence: TR)
  Receive Date: 20181016
  Receipt Date: 20181016
  Transmission Date: 20190205
  Serious: Yes (Death, Hospitalization)
  Sender: FDA-Public Use
  Company Number: PHHY2018TR127378

PATIENT
  Age: 50 Year
  Sex: Male

DRUGS (2)
  1. SERTRALINE [Suspect]
     Active Substance: SERTRALINE HYDROCHLORIDE
     Indication: CREUTZFELDT-JAKOB DISEASE
     Dosage: 100 MG, QD
     Route: 065
  2. QUETIAPINE. [Suspect]
     Active Substance: QUETIAPINE
     Indication: CREUTZFELDT-JAKOB DISEASE
     Dosage: 25 MG, QD
     Route: 065

REACTIONS (6)
  - Altered state of consciousness [Fatal]
  - Myoclonus [Fatal]
  - Somnolence [Fatal]
  - Agitation [Fatal]
  - Irritability [Fatal]
  - Product use in unapproved indication [Unknown]
